FAERS Safety Report 7385307-0 (Version None)
Quarter: 2011Q1

REPORT INFORMATION
  Report Type: 
  Country: None (occurrence: None)
  Receive Date: 20110330
  Receipt Date: 20100617
  Transmission Date: 20110831
  Serious: No
  Sender: FDA-Public Use
  Company Number: US-MYLANLABS-2010S1010533

PATIENT
  Age: 64 Year
  Sex: Male
  Weight: 119.75 kg

DRUGS (1)
  1. EMSAM [Suspect]
     Indication: DEPRESSION
     Dosage: CHANGED DAILY
     Route: 062

REACTIONS (6)
  - APPLICATION SITE ERYTHEMA [None]
  - APPLICATION SITE PRURITUS [None]
  - APPLICATION SITE SWELLING [None]
  - APPLICATION SITE PAIN [None]
  - SKIN HYPERTROPHY [None]
  - APPLICATION SITE IRRITATION [None]
